FAERS Safety Report 4348072-7 (Version None)
Quarter: 2004Q2

REPORT INFORMATION
  Report Type: 
  Country: None (occurrence: None)
  Receive Date: 20040422
  Receipt Date: 20040414
  Transmission Date: 20050107
  Serious: Yes (Hospitalization)
  Sender: FDA-Public Use
  Company Number: 200411806BCC

PATIENT
  Age: 30 Year
  Sex: Female
  Weight: 49.8957 kg

DRUGS (5)
  1. ALEVE (CAPLET) [Suspect]
     Indication: DYSMENORRHOEA
     Dosage: SEE IMAGE
     Route: 048
     Dates: start: 19990101
  2. ALEVE (CAPLET) [Suspect]
     Indication: TOOTHACHE
     Dosage: SEE IMAGE
     Route: 048
     Dates: start: 19990101
  3. ALEVE (CAPLET) [Suspect]
     Indication: DYSMENORRHOEA
     Dosage: SEE IMAGE
     Route: 048
     Dates: start: 20040414
  4. ALEVE (CAPLET) [Suspect]
     Indication: TOOTHACHE
     Dosage: SEE IMAGE
     Route: 048
     Dates: start: 20040414
  5. 4 CUPS OF COFFEE (CAFFEINE) [Suspect]

REACTIONS (7)
  - DEHYDRATION [None]
  - ERYTHEMA [None]
  - FEELING HOT [None]
  - FLUSHING [None]
  - LOSS OF CONSCIOUSNESS [None]
  - TREMOR [None]
  - VOMITING [None]
